FAERS Safety Report 9052507 (Version 1)
Quarter: 2013Q1

REPORT INFORMATION
  Report Type: Spontaneous
  Country: BE (occurrence: BE)
  Receive Date: 20130207
  Receipt Date: 20130207
  Transmission Date: 20140127
  Serious: Yes (Life-Threatening, Other)
  Sender: FDA-Public Use
  Company Number: PHHY2013BE011593

PATIENT
  Age: 55 Year
  Sex: Female

DRUGS (5)
  1. AFINITOR [Suspect]
     Indication: RENAL CANCER
     Dosage: 10 MG, DAILY
     Route: 048
  2. AFINITOR [Suspect]
     Dosage: 5 MG, DAILY
     Route: 048
  3. PANTOPRAZOL [Concomitant]
     Indication: GASTRIC DISORDER
     Dosage: 20 MG, DAILY
     Route: 048
  4. PRAVASINE [Concomitant]
     Indication: HYPERCHOLESTEROLAEMIA
     Dosage: 10 MG, DAILY
  5. BISOPROLOL [Concomitant]
     Indication: MYOCARDIAL INFARCTION
     Dosage: 5 MG, DAILY

REACTIONS (4)
  - Nephrotic syndrome [Recovering/Resolving]
  - Creatinine renal clearance decreased [Recovering/Resolving]
  - Proteinuria [Recovering/Resolving]
  - Renal failure [Unknown]
